FAERS Safety Report 6945913-1 (Version None)
Quarter: 2010Q3

REPORT INFORMATION
  Report Type: 
  Country: None (occurrence: None)
  Receive Date: 20100827
  Receipt Date: 20100819
  Transmission Date: 20110219
  Serious: Yes (Other)
  Sender: FDA-Public Use
  Company Number: GXKR2010GB05073

PATIENT
  Age: 52 Year
  Sex: Male
  Weight: 76 kg

DRUGS (9)
  1. BISOPROLOL (NGX) [Suspect]
     Dosage: 10 MG, QD
     Route: 048
     Dates: start: 20100317, end: 20100319
  2. NEBIVOLOL (NGX) [Suspect]
     Dosage: 7.5 MG, QD
     Route: 048
     Dates: start: 20100319, end: 20100408
  3. ASPIRIN [Concomitant]
     Dosage: 75 MG, QD
     Route: 065
  4. ATORVASTATIN [Concomitant]
     Dosage: 80 MG, QD
     Route: 065
  5. FUROSEMIDE [Concomitant]
     Dosage: 20 MG, UNK
     Route: 065
     Dates: start: 20100319
  6. FUROSEMIDE [Concomitant]
     Dosage: 40 MG, UNK
     Route: 065
     Dates: end: 20100319
  7. NITROGLYCERIN [Concomitant]
     Dosage: 1 DF, QD
  8. RAMIPRIL [Concomitant]
     Dosage: 5 MG, QD
     Route: 065
  9. SPIRONOLACTONE [Concomitant]
     Dosage: 2.5 MG, QD
     Route: 065
     Dates: start: 20100329

REACTIONS (3)
  - PERIPHERAL COLDNESS [None]
  - RENAL IMPAIRMENT [None]
  - SKIN DISCOLOURATION [None]
